FAERS Safety Report 25310524 (Version 5)
Quarter: 2025Q4

REPORT INFORMATION
  Report Type: Spontaneous
  Country: JP (occurrence: JP)
  Receive Date: 20250514
  Receipt Date: 20251121
  Transmission Date: 20260117
  Serious: Yes (Death, Hospitalization, Other)
  Sender: ASTELLAS
  Company Number: JP-ASTELLAS-2025-AER-025763

PATIENT
  Age: 77 Year
  Sex: Female
  Weight: 46 kg

DRUGS (11)
  1. VYLOY [Suspect]
     Active Substance: ZOLBETUXIMAB-CLZB
     Indication: Gastric cancer stage III
     Route: 042
     Dates: start: 20250422, end: 20250422
  2. OXALIPLATIN [Suspect]
     Active Substance: OXALIPLATIN
     Indication: Gastric cancer stage III
     Route: 042
     Dates: start: 20250422, end: 20250422
  3. XELODA [Suspect]
     Active Substance: CAPECITABINE
     Indication: Gastric cancer stage III
     Route: 048
     Dates: start: 20250422, end: 20250501
  4. Metoclopramide tablet 5 mg [Concomitant]
     Indication: Nausea
     Dosage: DURING NAUSEA
     Route: 065
     Dates: start: 20250423
  5. MIYA-BM tablet [Concomitant]
     Indication: Product used for unknown indication
     Dosage: AFTER EVERY MEAL
     Route: 065
     Dates: start: 20250502
  6. Pregabalin OD tablet 75 mg [Concomitant]
     Indication: Product used for unknown indication
     Dosage: AFTER BREAKFAST AND DINNER
     Route: 065
     Dates: start: 20250502
  7. Loperamide hydrochloride Capsule 1 mg [Concomitant]
     Indication: Diarrhoea
     Dosage: DURING DIARRHOEA
     Route: 065
     Dates: start: 20250502
  8. Isotonic sodium chloride solution Bag [Concomitant]
     Indication: Dehydration
     Route: 065
     Dates: start: 20250508
  9. Isotonic sodium chloride solution Bag [Concomitant]
     Indication: Febrile neutropenia
     Route: 065
     Dates: start: 20250502
  10. Isotonic sodium chloride solution Bag [Concomitant]
     Indication: Septic shock
  11. Tafluprost ophthalmic solution 0.0015% [Concomitant]
     Indication: Product used for unknown indication
     Dosage: ONCE-DAILY INSTILLATION IN BOTH EYES
     Route: 047

REACTIONS (5)
  - Lower gastrointestinal perforation [Fatal]
  - Myelosuppression [Fatal]
  - Febrile neutropenia [Unknown]
  - Septic shock [Unknown]
  - Nausea [Unknown]

NARRATIVE: CASE EVENT DATE: 20250422
